FAERS Safety Report 9028818 (Version 2)
Quarter: 2013Q3

REPORT INFORMATION
  Report Type: Spontaneous
  Country: US (occurrence: US)
  Receive Date: 20130124
  Receipt Date: 20130704
  Transmission Date: 20140515
  Serious: Yes (Other)
  Sender: FDA-Public Use
  Company Number: US-BRISTOL-MYERS SQUIBB COMPANY-17290511

PATIENT
  Age: 48 Year
  Sex: Female

DRUGS (4)
  1. ABATACEPT SUBQ INJECTION 125MG/ML [Suspect]
  2. METHOTREXATE [Concomitant]
  3. FOLIC ACID [Concomitant]
  4. TOPAMAX [Concomitant]

REACTIONS (4)
  - Fall [Unknown]
  - Rib fracture [Unknown]
  - Injection site erythema [Unknown]
  - Drug administration error [Unknown]
